FAERS Safety Report 7530264-7 (Version None)
Quarter: 2011Q2

REPORT INFORMATION
  Report Type: 
  Country: None (occurrence: None)
  Receive Date: 20110607
  Receipt Date: 20110521
  Transmission Date: 20111010
  Serious: No
  Sender: FDA-Public Use
  Company Number: US-ROXANE LABORATORIES, INC.-2011-RO-00718RO

PATIENT
  Sex: Female

DRUGS (2)
  1. MYCOPHENOLATE MEFETIL [Suspect]
     Dosage: 1000 MG
     Route: 048
  2. MYCOPHENOLATE MEFETIL [Suspect]
     Indication: LUPUS NEPHRITIS
     Dosage: 2500 MG
     Route: 048

REACTIONS (2)
  - DRUG INEFFECTIVE FOR UNAPPROVED INDICATION [None]
  - PROTEIN URINE PRESENT [None]
